FAERS Safety Report 9629245 (Version 1)
Quarter: 2013Q4

REPORT INFORMATION
  Report Type: Spontaneous
  Country: US (occurrence: US)
  Receive Date: 20131017
  Receipt Date: 20131017
  Transmission Date: 20140711
  Serious: No
  Sender: FDA-Public Use
  Company Number: US-ASTRAZENECA-2013SE71764

PATIENT
  Age: 78 Year
  Sex: Female
  Weight: 92.1 kg

DRUGS (4)
  1. LISINOPRIL HCTZ [Suspect]
     Indication: HYPERTENSION
     Dosage: 20 +12.5 MG DAILY
     Route: 048
  2. CRESTOR [Suspect]
     Indication: BLOOD CHOLESTEROL
     Route: 048
     Dates: start: 20130920, end: 20130922
  3. SIMVASTATIN [Suspect]
     Route: 065
  4. CARVEDIOLOL [Concomitant]
     Indication: HYPERTENSION
     Dosage: 6.25 MG. BID
     Route: 048

REACTIONS (13)
  - Osteoarthritis [Not Recovered/Not Resolved]
  - Pain [Not Recovered/Not Resolved]
  - Dysstasia [Not Recovered/Not Resolved]
  - Sleep disorder due to a general medical condition [Not Recovered/Not Resolved]
  - Body height decreased [Unknown]
  - Vertigo [Not Recovered/Not Resolved]
  - Blood cholesterol abnormal [Not Recovered/Not Resolved]
  - Fatigue [Unknown]
  - Constipation [Recovered/Resolved]
  - Abdominal pain upper [Recovered/Resolved]
  - Headache [Recovered/Resolved]
  - Nausea [Recovered/Resolved]
  - Dyspnoea [Not Recovered/Not Resolved]
